FAERS Safety Report 8806632 (Version 1)
Quarter: 2012Q4

REPORT INFORMATION
  Report Type: 
  Country: US (occurrence: US)
  Receive Date: 20120925
  Receipt Date: 20120925
  Transmission Date: 20130627
  Serious: No
  Sender: FDA-Public Use
  Company Number: US-PFIZER INC-2012235108

PATIENT
  Sex: Female

DRUGS (1)
  1. SPIRONOLACTONE [Suspect]
     Dosage: UNK

REACTIONS (7)
  - Eosinophilia [Unknown]
  - Drug eruption [Unknown]
  - Menstrual disorder [Unknown]
  - Blister [Unknown]
  - Skin lesion [Unknown]
  - Weight increased [Unknown]
  - Somnolence [Unknown]
